FAERS Safety Report 16610001 (Version 1)
Quarter: 2019Q3

REPORT INFORMATION
  Report Type: Report from Study
  Country: FI (occurrence: FI)
  Receive Date: 20190722
  Receipt Date: 20190722
  Transmission Date: 20191004
  Serious: Yes (Other)
  Sender: FDA-Public Use
  Company Number: FI-JNJFOC-20190629968

PATIENT

DRUGS (2)
  1. IFOSFAMIDE. [Suspect]
     Active Substance: IFOSFAMIDE
     Indication: SOFT TISSUE SARCOMA
     Route: 065
  2. DOXORUBICIN HYDROCHLORIDE SOLUTION FOR INFUSION [Suspect]
     Active Substance: DOXORUBICIN HYDROCHLORIDE
     Indication: SOFT TISSUE SARCOMA
     Route: 065

REACTIONS (8)
  - Bone marrow toxicity [Unknown]
  - Wound complication [Unknown]
  - Febrile neutropenia [Unknown]
  - Product use in unapproved indication [Unknown]
  - Off label use [Unknown]
  - Oesophagitis [Unknown]
  - Influenza [Unknown]
  - Performance status decreased [Unknown]
